FAERS Safety Report 4325515-6 (Version None)
Quarter: 2004Q1

REPORT INFORMATION
  Report Type: 
  Country: None (occurrence: None)
  Receive Date: 20040324
  Receipt Date: 20040310
  Transmission Date: 20041129
  Serious: Yes (Hospitalization)
  Sender: FDA-Public Use
  Company Number: 2004016711

PATIENT
  Sex: Female
  Weight: 58.7 kg

DRUGS (12)
  1. TIKOSYN [Suspect]
     Indication: ATRIAL FIBRILLATION
     Dosage: 250 MCG (BID), ORAL
     Route: 048
     Dates: end: 20040301
  2. FUROSEMIDE [Concomitant]
  3. CARVEDILOL [Concomitant]
  4. SPIRONOLACTONE [Concomitant]
  5. VENLAFAXINE HCL [Concomitant]
  6. COLCHICINE (COLCHICINE) [Concomitant]
  7. ALLOPURINOL [Concomitant]
  8. DIGOXIN [Concomitant]
  9. ATORVASTATIN CALCIUM [Concomitant]
  10. VALPROATE SODIUM [Concomitant]
  11. ACETYLSALICYLIC ACID SRT [Concomitant]
  12. CALCIUM WITH VITAMIN D (ERGOCALCIFEROL, CALCIUM PHOSPHATE, CALCIUM SOD [Concomitant]

REACTIONS (5)
  - BLOOD CREATININE INCREASED [None]
  - BLOOD UREA INCREASED [None]
  - CREATININE RENAL CLEARANCE DECREASED [None]
  - DYSPNOEA [None]
  - LABORATORY TEST ABNORMAL [None]
